FAERS Safety Report 9278160 (Version 1)
Quarter: 2013Q2

REPORT INFORMATION
  Report Type: Report from Study
  Country: US (occurrence: US)
  Receive Date: 20130508
  Receipt Date: 20130508
  Transmission Date: 20140414
  Serious: Yes (Death)
  Sender: FDA-Public Use
  Company Number: PHEH2013US010168

PATIENT
  Sex: Female

DRUGS (11)
  1. TASIGNA [Suspect]
     Indication: CHRONIC MYELOID LEUKAEMIA
     Dosage: 300 MG, Q12H
     Route: 048
     Dates: start: 20120726
  2. ASPIRIN [Concomitant]
  3. CALCIUM [Concomitant]
  4. MVI [Concomitant]
  5. BUMETANIDE [Concomitant]
  6. LISINOPRIL [Concomitant]
  7. SIMVASTATIN [Concomitant]
  8. METOPROLOL [Concomitant]
  9. GLIMEPIRIDE [Concomitant]
  10. NOVOLOG [Concomitant]
  11. LANTUS [Concomitant]

REACTIONS (1)
  - Death [Fatal]
